FAERS Safety Report 6971233-5 (Version None)
Quarter: 2010Q3

REPORT INFORMATION
  Report Type: 
  Country: None (occurrence: None)
  Receive Date: 20100908
  Receipt Date: 20100903
  Transmission Date: 20110219
  Serious: Yes (Other)
  Sender: FDA-Public Use
  Company Number: GB-CEPHALON-2010004756

PATIENT
  Sex: Male

DRUGS (4)
  1. TREANDA [Suspect]
     Indication: MANTLE CELL LYMPHOMA
     Route: 041
  2. TREANDA [Suspect]
     Route: 041
  3. TREANDA [Suspect]
     Route: 041
     Dates: start: 20100707, end: 20100707
  4. RITUXIMAB [Suspect]
     Indication: MANTLE CELL LYMPHOMA

REACTIONS (1)
  - PANCYTOPENIA [None]
